FAERS Safety Report 11945970 (Version 1)
Quarter: 2016Q1

REPORT INFORMATION
  Report Type: Spontaneous
  Country: US (occurrence: US)
  Receive Date: 20160125
  Receipt Date: 20160125
  Transmission Date: 20160526
  Serious: No
  Sender: FDA-Public Use
  Company Number: US-AMGEN-USASP2015128547

PATIENT
  Age: 75 Year
  Sex: Female

DRUGS (1)
  1. REPATHA [Suspect]
     Active Substance: EVOLOCUMAB
     Indication: HYPERCHOLESTEROLAEMIA
     Dosage: 140 MG, Q2WK
     Route: 065

REACTIONS (9)
  - Musculoskeletal stiffness [Recovered/Resolved]
  - Toothache [Unknown]
  - Hypersensitivity [Unknown]
  - Migraine with aura [Recovered/Resolved]
  - Presyncope [Unknown]
  - Agitation [Recovered/Resolved]
  - Vertigo [Recovered/Resolved]
  - Contusion [Unknown]
  - Nausea [Unknown]

NARRATIVE: CASE EVENT DATE: 201511
